FAERS Safety Report 9033131 (Version 1)
Quarter: 2013Q1

REPORT INFORMATION
  Report Type: Spontaneous
  Country: US (occurrence: US)
  Receive Date: 20130128
  Receipt Date: 20130128
  Transmission Date: 20140127
  Serious: Yes (Hospitalization, Other)
  Sender: FDA-Public Use
  Company Number: US-MYLANLABS-2012S1014172

PATIENT
  Sex: Male

DRUGS (3)
  1. EXTENDED PHENYTOIN SODIUM CAPSULES, USP [Suspect]
     Route: 048
     Dates: start: 200910
  2. FOSPHENYTOIN [Suspect]
     Dates: start: 200910
  3. DILANTIN [Suspect]

REACTIONS (1)
  - Stevens-Johnson syndrome [Not Recovered/Not Resolved]
